FAERS Safety Report 6629552-8 (Version None)
Quarter: 2010Q1

REPORT INFORMATION
  Report Type: 
  Country: None (occurrence: None)
  Receive Date: 20100311
  Receipt Date: 20100225
  Transmission Date: 20100710
  Serious: Yes (Other)
  Sender: FDA-Public Use
  Company Number: US-ELI_LILLY_AND_COMPANY-US201003000423

PATIENT
  Sex: Female

DRUGS (1)
  1. EFFIENT [Suspect]
     Dosage: 10 MG, UNK

REACTIONS (2)
  - NUCLEAR MAGNETIC RESONANCE IMAGING ABNORMAL [None]
  - TRANSIENT ISCHAEMIC ATTACK [None]
